FAERS Safety Report 4392389-7 (Version None)
Quarter: 2004Q3

REPORT INFORMATION
  Report Type: 
  Country: None (occurrence: None)
  Receive Date: 20040702
  Receipt Date: 20040308
  Transmission Date: 20050211
  Serious: Yes (Other)
  Sender: FDA-Public Use
  Company Number: 2004UW04379

PATIENT
  Age: 79 Year
  Sex: Female
  Weight: 57.6068 kg

DRUGS (5)
  1. CRESTOR [Suspect]
     Indication: BLOOD CHOLESTEROL INCREASED
     Dosage: 10 MG DAILY PO
     Route: 048
  2. SYNTHROID [Concomitant]
  3. ECOTRIN [Concomitant]
  4. INDERAL [Concomitant]
  5. PREDNISONE [Concomitant]

REACTIONS (2)
  - CHEST PAIN [None]
  - PHARYNX DISCOMFORT [None]
